FAERS Safety Report 12124601 (Version 1)
Quarter: 2016Q1

REPORT INFORMATION
  Report Type: Spontaneous
  Country: US (occurrence: US)
  Receive Date: 20160229
  Receipt Date: 20160229
  Transmission Date: 20160526
  Serious: No
  Sender: FDA-Public Use
  Company Number: US-APOTEX-2015AP013687

PATIENT
  Age: 46 Year
  Sex: Male

DRUGS (2)
  1. DOCETAXEL INJECTION [Suspect]
     Active Substance: DOCETAXEL
     Indication: MALIGNANT MESENCHYMOMA
     Dosage: 100 MG/M2 OVER 60 MINUTES ON DAYS 8 OF A 21-DAY CYCLE
     Route: 042
  2. GEMCITABINE [Suspect]
     Active Substance: GEMCITABINE\GEMCITABINE HYDROCHLORIDE
     Indication: MALIGNANT MESENCHYMOMA
     Dosage: 900 MG/M2 OVER 90 MINUTES ON DAYS 1 AND 8 OF A 21-DAY CYCLE
     Route: 042

REACTIONS (1)
  - Gastrointestinal toxicity [Unknown]
